FAERS Safety Report 7539803-3 (Version None)
Quarter: 2011Q2

REPORT INFORMATION
  Report Type: 
  Country: None (occurrence: None)
  Receive Date: 20110610
  Receipt Date: 20110607
  Transmission Date: 20111010
  Serious: Yes (Other)
  Sender: FDA-Public Use
  Company Number: PHEH2008US07414

PATIENT
  Sex: Female
  Weight: 73.696 kg

DRUGS (26)
  1. EFFEXOR [Concomitant]
  2. FEMARA [Concomitant]
     Dosage: 2.5MG PO QD
     Route: 048
  3. PERIDEX [Concomitant]
     Dosage: X4 PER DAY
  4. DIFLUCAN [Concomitant]
  5. FASLODEX [Concomitant]
     Dosage: 250MG IM Q28DAYS
  6. PAXIL [Concomitant]
     Dosage: 20MG QD
     Dates: end: 20080801
  7. HERCEPTIN [Concomitant]
     Dosage: 2MG/KG Q3WEEKS
  8. XYLOCAINE [Concomitant]
     Dosage: PRN
     Dates: start: 20071214
  9. TAXOL + CARBOPLATIN [Concomitant]
     Dosage: UNK
     Dates: start: 20030904, end: 20040402
  10. AREDIA [Suspect]
     Dosage: UNK, Q 3 MONTHS
     Dates: start: 20070323
  11. NAMENDA [Concomitant]
     Dosage: 5MG BID
     Dates: start: 20080723
  12. CEREFOLIN NAC [Concomitant]
     Dosage: 1 TAB IN AM
  13. DEPLIN [Concomitant]
     Dosage: 1 TAB IN AM
     Dates: start: 20080723
  14. TAMOXIFEN CITRATE [Concomitant]
  15. NYSTATIN [Concomitant]
  16. CISPLATIN [Concomitant]
  17. ZOMETA [Suspect]
     Dosage: 4 MG, Q 28 DAYS
     Route: 041
     Dates: start: 20031001, end: 20070323
  18. PROZAC [Concomitant]
  19. CYMBALTA [Concomitant]
     Dosage: 30MG QD
     Dates: start: 20080723
  20. COUMADIN [Concomitant]
     Dosage: UNK
     Dates: start: 20080708
  21. TAXOL [Concomitant]
     Dosage: UNK
     Dates: start: 20040402, end: 20040423
  22. MINOCYCLINE HCL [Concomitant]
     Dosage: UNK
     Dates: start: 20071214, end: 20071228
  23. HEPARIN LOCK-FLUSH [Concomitant]
     Dosage: 500 UNITS
  24. HERCEPTIN [Concomitant]
     Dosage: 4MG/KG Q3WEEKS
  25. PROCRIT                            /00909301/ [Concomitant]
  26. MULTIVITAMIN ^LAPPE^ [Concomitant]

REACTIONS (62)
  - INJURY [None]
  - APHASIA [None]
  - CONFUSIONAL STATE [None]
  - WEIGHT DECREASED [None]
  - BREAST CANCER METASTATIC [None]
  - WOUND INFECTION STAPHYLOCOCCAL [None]
  - ATAXIA [None]
  - RENAL FAILURE CHRONIC [None]
  - DIZZINESS [None]
  - OSTEORADIONECROSIS [None]
  - HYPERGLYCAEMIA [None]
  - ATELECTASIS [None]
  - ANHEDONIA [None]
  - AURICULAR SWELLING [None]
  - GLIOSIS [None]
  - INTRACRANIAL HYPOTENSION [None]
  - ENCEPHALOMALACIA [None]
  - NASAL TURBINATE HYPERTROPHY [None]
  - MASTOID EFFUSION [None]
  - PNEUMOTHORAX [None]
  - METASTASES TO LIVER [None]
  - ANXIETY [None]
  - HEADACHE [None]
  - HYPOACUSIS [None]
  - INFECTION [None]
  - OSTEOMYELITIS [None]
  - ANAEMIA [None]
  - HEPATIC CIRRHOSIS [None]
  - LEFT ATRIAL DILATATION [None]
  - OPEN WOUND [None]
  - IMPAIRED HEALING [None]
  - MENINGIOMA [None]
  - PARTIAL SEIZURES [None]
  - VOMITING [None]
  - SUBDURAL HAEMATOMA [None]
  - DYSTHYMIC DISORDER [None]
  - SECRETION DISCHARGE [None]
  - CHOLELITHIASIS [None]
  - CELLULITIS [None]
  - MUSCULAR WEAKNESS [None]
  - AORTIC VALVE INCOMPETENCE [None]
  - PAIN [None]
  - HYDROCEPHALUS [None]
  - OSTEOSCLEROSIS [None]
  - FLAT AFFECT [None]
  - HEPATIC LESION [None]
  - OSTEONECROSIS OF JAW [None]
  - MAJOR DEPRESSION [None]
  - NAUSEA [None]
  - HERPES SIMPLEX [None]
  - VISION BLURRED [None]
  - OSTEOPENIA [None]
  - MITRAL VALVE INCOMPETENCE [None]
  - MEMORY IMPAIRMENT [None]
  - GAIT DISTURBANCE [None]
  - FALL [None]
  - MUSCLE DISORDER [None]
  - SYNCOPE [None]
  - TREMOR [None]
  - PROCEDURAL HYPERTENSION [None]
  - AORTIC ARTERIOSCLEROSIS [None]
  - TRICUSPID VALVE INCOMPETENCE [None]
